FAERS Safety Report 11112752 (Version 2)
Quarter: 2015Q2

REPORT INFORMATION
  Report Type: Spontaneous
  Country: DZ (occurrence: DZ)
  Receive Date: 20150514
  Receipt Date: 20150610
  Transmission Date: 20150821
  Serious: Yes (Life-Threatening, Other)
  Sender: FDA-Public Use
  Company Number: DZ-NOVOPROD-448716

PATIENT
  Age: 60 Year
  Sex: Female
  Weight: 85 kg

DRUGS (5)
  1. VICTOZA [Suspect]
     Active Substance: LIRAGLUTIDE
     Indication: OFF LABEL USE
  2. APIDRA [Concomitant]
     Active Substance: INSULIN GLULISINE
     Dosage: 24/24
     Route: 058
  3. GLUCOPHAGE [Concomitant]
     Active Substance: METFORMIN HYDROCHLORIDE
     Dosage: UNK
     Route: 048
  4. VICTOZA [Suspect]
     Active Substance: LIRAGLUTIDE
     Indication: PRODUCT USED FOR UNKNOWN INDICATION
     Dosage: 0.6
     Route: 065
     Dates: start: 201501, end: 201503
  5. LANTUS [Concomitant]
     Active Substance: INSULIN GLARGINE
     Dosage: 22 IU, QD
     Route: 058

REACTIONS (2)
  - Breast mass [Not Recovered/Not Resolved]
  - Off label use [Unknown]

NARRATIVE: CASE EVENT DATE: 201501
